FAERS Safety Report 9459320 (Version 6)
Quarter: 2014Q1

REPORT INFORMATION
  Report Type: Report from Study
  Country: CN (occurrence: CN)
  Receive Date: 20130815
  Receipt Date: 20140106
  Transmission Date: 20141002
  Serious: Yes (Death, Life-Threatening, Hospitalization, Disabling)
  Sender: FDA-Public Use
  Company Number: CN-AMGEN-CHNCT2013057022

PATIENT
  Age: 50 Year
  Sex: Male
  Weight: 74 kg

DRUGS (2)
  1. PANITUMUMAB [Suspect]
     Indication: COLORECTAL CANCER METASTATIC
     Dosage: UNK MG, UNK, ADVERSE EVENT
     Route: 065
     Dates: start: 20130729, end: 20130729
  2. GLICLAZIDE [Concomitant]
     Indication: GLYCOSURIA
     Dosage: UNK
     Route: 048
     Dates: start: 20130718, end: 20130817

REACTIONS (1)
  - Jaundice cholestatic [Fatal]
